FAERS Safety Report 6810865-1 (Version None)
Quarter: 2010Q2

REPORT INFORMATION
  Report Type: 
  Country: None (occurrence: None)
  Receive Date: 20100630
  Receipt Date: 20080508
  Transmission Date: 20101027
  Serious: No
  Sender: FDA-Public Use
  Company Number: US-PFIZER INC-2008023603

PATIENT
  Sex: Male
  Weight: 88.45 kg

DRUGS (3)
  1. NICOTROL [Suspect]
     Indication: SMOKING CESSATION THERAPY
     Dates: start: 20060101
  2. LIPITOR [Concomitant]
  3. LEXAPRO [Concomitant]

REACTIONS (2)
  - DRUG EFFECT DECREASED [None]
  - TOBACCO USER [None]
